FAERS Safety Report 9559238 (Version 1)
Quarter: 2013Q3

REPORT INFORMATION
  Report Type: Spontaneous
  Country: US (occurrence: None)
  Receive Date: 20130925
  Receipt Date: 20130925
  Transmission Date: 20140515
  Serious: Yes (Death)
  Sender: FDA-Public Use
  Company Number: 2013NUEUSA00240

PATIENT
  Sex: Female

DRUGS (2)
  1. NUEDEXTA [Suspect]
     Indication: AFFECT LABILITY
  2. ANTIPSYCHOTICS [Concomitant]

REACTIONS (1)
  - Asthenia [None]
